FAERS Safety Report 9881793 (Version 1)
Quarter: 2014Q1

REPORT INFORMATION
  Report Type: Spontaneous
  Country: US (occurrence: US)
  Receive Date: 20140207
  Receipt Date: 20140207
  Transmission Date: 20141002
  Serious: Yes (Other)
  Sender: FDA-Public Use
  Company Number: US-EISAI INC-AP356-00423-SPO-US

PATIENT
  Age: 70 Year
  Sex: Female

DRUGS (1)
  1. BELVIQ (LORCASERIN HYDROCHLORIDE) [Suspect]
     Indication: WEIGHT CONTROL
     Dosage: UNKNOWN
     Route: 048
     Dates: start: 201401, end: 201401

REACTIONS (1)
  - Atrial fibrillation [Unknown]
